FAERS Safety Report 21307543 (Version 1)
Quarter: 2022Q3

REPORT INFORMATION
  Report Type: Spontaneous
  Country: US (occurrence: US)
  Receive Date: 20220908
  Receipt Date: 20220908
  Transmission Date: 20221027
  Serious: Yes (Other)
  Sender: FDA-Public Use
  Company Number: US-INTRA-CELLULAR THERAPIES, INC.-2022ICT01140

PATIENT
  Age: 25 Year
  Sex: Female

DRUGS (2)
  1. CAPLYTA [Suspect]
     Active Substance: LUMATEPERONE
     Dosage: UNK
     Dates: start: 20220715, end: 20220718
  2. CAPLYTA [Suspect]
     Active Substance: LUMATEPERONE
     Dosage: UNK
     Dates: start: 20220729, end: 20220807

REACTIONS (14)
  - Facial paralysis [Recovering/Resolving]
  - Hemiparesis [Recovering/Resolving]
  - Mental impairment [Unknown]
  - Visual impairment [Recovering/Resolving]
  - Migraine [Unknown]
  - Disturbance in attention [Unknown]
  - Aphasia [Unknown]
  - Speech disorder [Unknown]
  - Pain [Unknown]
  - Dysphemia [Unknown]
  - Hypotension [Unknown]
  - Gait disturbance [Recovering/Resolving]
  - Nausea [Unknown]
  - Fatigue [Unknown]

NARRATIVE: CASE EVENT DATE: 20220101
